FAERS Safety Report 7486205-4 (Version None)
Quarter: 2011Q2

REPORT INFORMATION
  Report Type: 
  Country: None (occurrence: None)
  Receive Date: 20110517
  Receipt Date: 20110504
  Transmission Date: 20111010
  Serious: Yes (Hospitalization, Other)
  Sender: FDA-Public Use
  Company Number: US-BAYER-2011-039499

PATIENT
  Age: 78 Year
  Sex: Female
  Weight: 44 kg

DRUGS (12)
  1. TUMS [CALCIUM CARBONATE] [Concomitant]
     Dosage: UNK
     Dates: start: 20110317
  2. NEBIVOLOL HCL [Concomitant]
  3. SIMVASTATIN [Concomitant]
  4. CITRACAL PETITES [Suspect]
     Dosage: COUNT BOTTLE 200S
     Route: 048
     Dates: start: 20110414, end: 20110416
  5. FLAGYL [Concomitant]
     Dosage: UNK
     Dates: start: 20110401
  6. CITRACAL PETITES [Suspect]
     Dosage: COUNT BOTTLE 200S
     Route: 048
     Dates: start: 20110429
  7. CALCIUM [CALCIUM] [Concomitant]
     Dosage: UNK
     Dates: start: 20110317
  8. ACIPHEX [Concomitant]
  9. CITRACAL PETITES [Suspect]
     Dosage: COUNT BOTTLE 200S
     Route: 048
     Dates: start: 20110325, end: 20110406
  10. DIOVAN [Concomitant]
  11. CITRACAL PETITES [Suspect]
     Dosage: COUNT BOTTLE 200S
     Route: 048
     Dates: start: 20110420, end: 20110428
  12. ASPIRIN [Suspect]
     Dosage: UNK

REACTIONS (10)
  - DIARRHOEA [None]
  - HAEMATOCHEZIA [None]
  - VOMITING [None]
  - MYOCARDIAL INFARCTION [None]
  - NAUSEA [None]
  - WHITE BLOOD CELL COUNT INCREASED [None]
  - ABDOMINAL PAIN UPPER [None]
  - BLOOD CALCIUM INCREASED [None]
  - RECTAL HAEMORRHAGE [None]
  - OESOPHAGEAL IRRITATION [None]
